FAERS Safety Report 4971646-7 (Version None)
Quarter: 2006Q2

REPORT INFORMATION
  Report Type: 
  Country: None (occurrence: None)
  Receive Date: 20060413
  Receipt Date: 20060410
  Transmission Date: 20061013
  Serious: Yes (Hospitalization)
  Sender: FDA-Public Use
  Company Number: PHRM2006FR01312

PATIENT
  Age: 58 Year
  Sex: Male

DRUGS (4)
  1. NEORAL [Suspect]
     Indication: BONE MARROW TRANSPLANT
     Dosage: 300 MG/DAY
     Route: 048
     Dates: start: 20060203, end: 20060207
  2. BUSULFAN [Concomitant]
  3. THYMOGLOBULIN [Concomitant]
  4. FLUDARA [Concomitant]
     Route: 042

REACTIONS (6)
  - BRAIN OEDEMA [None]
  - CONVULSION [None]
  - CSF PROTEIN [None]
  - DISORIENTATION [None]
  - NUCLEAR MAGNETIC RESONANCE IMAGING ABNORMAL [None]
  - STATUS EPILEPTICUS [None]
